FAERS Safety Report 10140225 (Version 1)
Quarter: 2014Q2

REPORT INFORMATION
  Report Type: Spontaneous
  Country: CA (occurrence: CA)
  Receive Date: 20140429
  Receipt Date: 20140429
  Transmission Date: 20141212
  Serious: Yes (Other)
  Sender: FDA-Public Use
  Company Number: CA-PFIZER INC-2014111467

PATIENT
  Age: 34 Year
  Sex: Male

DRUGS (3)
  1. IBUPROFEN [Suspect]
     Dosage: 200 MG, UNK
     Route: 048
  2. NAPROXEN [Suspect]
     Dosage: 500 MG, UNK
  3. TORADOL [Suspect]
     Dosage: 30 MG, UNK
     Route: 030

REACTIONS (7)
  - Cholelithiasis [Unknown]
  - Jaundice [Unknown]
  - Ocular icterus [Unknown]
  - Bilirubin conjugated increased [Unknown]
  - Blood bilirubin increased [Unknown]
  - Blood bilirubin unconjugated [Unknown]
  - Hepatic enzyme increased [Unknown]
